FAERS Safety Report 9237904 (Version 2)
Quarter: 2013Q4

REPORT INFORMATION
  Report Type: Spontaneous
  Country: GB (occurrence: None)
  Receive Date: 20130415
  Receipt Date: 20131119
  Transmission Date: 20140711
  Serious: Yes (Disabling, Other)
  Sender: FDA-Public Use
  Company Number: AUR-APL-2013-02948

PATIENT
  Age: 48 Year
  Sex: Female
  Weight: 100 kg

DRUGS (8)
  1. NAPROXEN [Suspect]
     Indication: PRODUCT USED FOR UNKNOWN INDICATION
     Dates: start: 20130227
  2. ADIZEM-XL (DILTIAZEM HYDROCHLORIDE) [Concomitant]
  3. GYCERYL TRINITRATE (GLYCERYL TRINITRATE) [Concomitant]
  4. MUCOPOLYSACCHARDIES NOS [Concomitant]
  5. NORTRIPTYLINE [Concomitant]
  6. OMEPRAZOLE [Concomitant]
  7. PARACETAMOL [Concomitant]
  8. TRAMADOL [Concomitant]

REACTIONS (2)
  - Angina pectoris [None]
  - Arteriospasm coronary [None]
